FAERS Safety Report 7245228-0 (Version None)
Quarter: 2011Q1

REPORT INFORMATION
  Report Type: 
  Country: None (occurrence: None)
  Receive Date: 20110118
  Receipt Date: 20101223
  Transmission Date: 20110831
  Serious: Yes (Other)
  Sender: FDA-Public Use
  Company Number: 0032011

PATIENT
  Age: 1 Year
  Sex: Male

DRUGS (2)
  1. PILOCARPINE [Concomitant]
  2. NYLOL GEL (TIMOLOL MALEATE) COLLYRIUM, 0.1%, 5 ML [Suspect]

REACTIONS (2)
  - GLAUCOMA SURGERY [None]
  - DRUG DOSE OMISSION [None]
